FAERS Safety Report 8264233-9 (Version None)
Quarter: 2012Q2

REPORT INFORMATION
  Report Type: 
  Country: None (occurrence: None)
  Receive Date: 20120406
  Receipt Date: 20120327
  Transmission Date: 20120825
  Serious: Yes (Hospitalization)
  Sender: FDA-Public Use
  Company Number: CA-JNJFOC-20120313401

PATIENT
  Sex: Female
  Weight: 56 kg

DRUGS (2)
  1. REMICADE [Suspect]
     Indication: CROHN'S DISEASE
     Dosage: 2 LOADING DOSE
     Route: 042
  2. REMICADE [Suspect]
     Route: 042
     Dates: start: 20120228

REACTIONS (4)
  - DIZZINESS [None]
  - PALPITATIONS [None]
  - DYSPNOEA [None]
  - HYPERTENSION [None]
